FAERS Safety Report 6903784-3 (Version None)
Quarter: 2010Q3

REPORT INFORMATION
  Report Type: 
  Country: None (occurrence: None)
  Receive Date: 20100804
  Receipt Date: 20081216
  Transmission Date: 20110219
  Serious: No
  Sender: FDA-Public Use
  Company Number: US-PFIZER INC-2008089903

PATIENT
  Sex: Male
  Weight: 72.6 kg

DRUGS (5)
  1. LYRICA [Suspect]
     Indication: RADICULAR PAIN
     Route: 048
     Dates: start: 20081016
  2. METFORMIN HCL [Concomitant]
  3. ALLOPURINOL [Concomitant]
  4. VITAMIN TAB [Concomitant]
  5. HYDROCODONE BITARTRATE [Concomitant]

REACTIONS (4)
  - DRUG INEFFECTIVE [None]
  - GINGIVAL PAIN [None]
  - ORAL PAIN [None]
  - TOOTHACHE [None]
